FAERS Safety Report 5901848-4 (Version None)
Quarter: 2008Q3

REPORT INFORMATION
  Report Type: 
  Country: None (occurrence: None)
  Receive Date: 20080929
  Receipt Date: 20080617
  Transmission Date: 20090109
  Serious: Yes (Disabling)
  Sender: FDA-Public Use
  Company Number: JP-BAYER-200811146BYL

PATIENT
  Age: 59 Year
  Sex: Male

DRUGS (2)
  1. FLUDARA [Suspect]
     Indication: B-CELL LYMPHOMA RECURRENT
     Route: 048
  2. RITUXAN [Concomitant]
     Indication: B-CELL LYMPHOMA RECURRENT
     Route: 065

REACTIONS (1)
  - HEPATIC FUNCTION ABNORMAL [None]
